FAERS Safety Report 6729252-X (Version None)
Quarter: 2010Q2

REPORT INFORMATION
  Report Type: 
  Country: None (occurrence: None)
  Receive Date: 20100517
  Receipt Date: 20100430
  Transmission Date: 20101027
  Serious: No
  Sender: FDA-Public Use
  Company Number: US-ABBOTT-10P-163-0641757-00

PATIENT
  Sex: Male
  Weight: 86.26 kg

DRUGS (2)
  1. SIMCOR [Suspect]
     Indication: BLOOD TRIGLYCERIDES INCREASED
     Dosage: 500/20 MG AT BEDTIME
  2. SIMCOR [Suspect]
     Indication: BLOOD CHOLESTEROL ABNORMAL

REACTIONS (3)
  - BLOOD URIC ACID INCREASED [None]
  - JOINT SWELLING [None]
  - MUSCULAR WEAKNESS [None]
